FAERS Safety Report 8101395-8 (Version None)
Quarter: 2012Q1

REPORT INFORMATION
  Report Type: 
  Country: None (occurrence: None)
  Receive Date: 20120129
  Receipt Date: 20110902
  Transmission Date: 20120608
  Serious: No
  Sender: FDA-Public Use
  Company Number: US-ABBOTT-11P-163-0852441-00

PATIENT
  Sex: Female
  Weight: 51.756 kg

DRUGS (3)
  1. FOLIC ACID [Concomitant]
     Indication: SUPPLEMENTATION THERAPY
  2. METHOTREXATE [Concomitant]
     Indication: POLYARTHRITIS
  3. HUMIRA [Suspect]
     Indication: POLYARTHRITIS
     Dates: start: 20110729

REACTIONS (4)
  - BLOOD CALCIUM DECREASED [None]
  - PROTEIN TOTAL DECREASED [None]
  - ANAEMIA [None]
  - HYPOTHYROIDISM [None]
